FAERS Safety Report 19792676 (Version 2)
Quarter: 2021Q3

REPORT INFORMATION
  Report Type: Spontaneous
  Country: US (occurrence: US)
  Receive Date: 20210906
  Receipt Date: 20210929
  Transmission Date: 20211014
  Serious: No
  Sender: FDA-Public Use
  Company Number: US-TEVA-2021-US-1948709

PATIENT
  Age: 49 Year
  Sex: Male
  Weight: 80.29 kg

DRUGS (1)
  1. AIRDUO RESPICLICK [Suspect]
     Active Substance: FLUTICASONE PROPIONATE\SALMETEROL XINAFOATE
     Indication: ASTHMA
     Dosage: DOSE OF 1 INHALATION TWICE DAILY ?232 MCG / 14 MCG
     Route: 048
     Dates: start: 20210824

REACTIONS (3)
  - Dyspnoea [Recovering/Resolving]
  - Cough [Unknown]
  - Drug ineffective [Unknown]

NARRATIVE: CASE EVENT DATE: 202108
